FAERS Safety Report 4931628-8 (Version None)
Quarter: 2006Q1

REPORT INFORMATION
  Report Type: 
  Country: None (occurrence: None)
  Receive Date: 20060303
  Receipt Date: 20051017
  Transmission Date: 20060701
  Serious: Yes (Disabling, Other)
  Sender: FDA-Public Use
  Company Number: US-BRISTOL-MYERS SQUIBB COMPANY-13147871

PATIENT
  Age: 80 Year
  Sex: Male

DRUGS (4)
  1. ERBITUX [Suspect]
     Indication: THROAT CANCER
     Dosage: LOAD DOSE 680 MG (23-AUG-2005), THEN 450 MG X 5. D/C 03-OCT-05.
     Route: 042
     Dates: start: 20050801, end: 20050801
  2. TAXOL [Concomitant]
     Dosage: 3 WEEKS ON, 1 OFF.
  3. CARBOPLATIN [Concomitant]
     Dosage: 3 WEEKS ON, 1 OFF
  4. ZOMETA [Concomitant]

REACTIONS (2)
  - SKIN REACTION [None]
  - SUPERINFECTION [None]
